FAERS Safety Report 9931059 (Version 1)
Quarter: 2014Q1

REPORT INFORMATION
  Report Type: Spontaneous
  Country: US (occurrence: US)
  Receive Date: 20140227
  Receipt Date: 20140227
  Transmission Date: 20141002
  Serious: Yes (Hospitalization, Other)
  Sender: FDA-Public Use
  Company Number: PHEH2014US003669

PATIENT
  Age: 59 Year
  Sex: Female
  Weight: 95.45 kg

DRUGS (18)
  1. GLEEVEC [Suspect]
     Indication: CHRONIC MYELOID LEUKAEMIA
     Dosage: 400 MG, UNK
     Dates: start: 2009
  2. TASIGNA [Suspect]
     Indication: CHRONIC MYELOID LEUKAEMIA
     Dosage: UNK UKN, UNK
  3. TASIGNA [Suspect]
     Dosage: UNK UKN, UNK
     Dates: start: 20120725
  4. HYDREA [Suspect]
  5. BOSUTINIB [Suspect]
     Indication: CHRONIC MYELOID LEUKAEMIA
     Dosage: 500 MG, DAILY
     Route: 048
     Dates: start: 20121018
  6. BOSUTINIB [Suspect]
     Dosage: 500 MG, DAILY
     Dates: start: 20121116
  7. KEPPRA [Concomitant]
     Dosage: 500 MG, 6QD (3 TABLETS IN THE MORNING AND 3 TABLETS IN THE EVENING)
     Dates: start: 20130822
  8. LEVOTHROID [Concomitant]
     Dosage: 150 UG, DAILY
  9. BUPROPION HCL [Concomitant]
     Dosage: 300 MG, DAILY
  10. BISOPROLOL HCT [Concomitant]
     Dosage: 1 DF, IN AM
     Dates: start: 20120920
  11. FUROSEMIDE [Concomitant]
     Dosage: 20 MG, QD
     Dates: start: 20120412
  12. TYLENOL EXTRA STRENGTH [Concomitant]
     Dosage: 500 MG, PRN
  13. METOCLOPRAMIDE HCL [Concomitant]
     Dosage: 5 MG, PRN
     Dates: start: 20121101
  14. ONDANSETRON [Concomitant]
     Indication: NAUSEA
     Dosage: 4 MG, PRN
     Dates: start: 20130822
  15. LOMOTIL [Concomitant]
     Indication: DIARRHOEA
     Dosage: 2 DF, QID
     Route: 048
     Dates: start: 20121116
  16. AZASITE [Concomitant]
     Dosage: 1 DF, Q12H (IN EACH EYE FOR 2 DAYS)
     Dates: start: 20130606
  17. AZASITE [Concomitant]
     Dosage: 1 DF, DAILY (IN EACH EYE FOR 5 DAYS)
  18. HYDROXYUREA [Concomitant]
     Dosage: UNK UKN, UNK
     Dates: start: 20120725

REACTIONS (16)
  - Thrombocytosis [Unknown]
  - Urinary tract infection [Unknown]
  - Pyrexia [Unknown]
  - Fall [Recovered/Resolved]
  - Upper limb fracture [Unknown]
  - Wrist fracture [Recovered/Resolved]
  - Erythropoiesis abnormal [Unknown]
  - Thyroid disorder [Unknown]
  - Medication error [Unknown]
  - Memory impairment [Unknown]
  - Arthralgia [Unknown]
  - Rash [Unknown]
  - Leukopenia [Unknown]
  - Diarrhoea [Unknown]
  - Vomiting [Unknown]
  - Joint stiffness [Unknown]
